FAERS Safety Report 10051090 (Version 1)
Quarter: 2014Q2

REPORT INFORMATION
  Report Type: Spontaneous
  Country: GB (occurrence: GB)
  Receive Date: 20140401
  Receipt Date: 20140401
  Transmission Date: 20141212
  Serious: Yes (Hospitalization, Other)
  Sender: FDA-Public Use
  Company Number: GB-PFIZER INC-2014089458

PATIENT
  Age: 37 Year
  Sex: Female
  Weight: 78.01 kg

DRUGS (2)
  1. FLUCONAZOLE [Suspect]
     Indication: ORAL CANDIDIASIS
     Dosage: 50 MG, 1X/DAY
     Route: 048
     Dates: start: 20140312, end: 20140317
  2. DOXYCYCLINE [Concomitant]
     Indication: SINUSITIS

REACTIONS (3)
  - Neuralgia [Recovered/Resolved]
  - Spinal pain [Recovered/Resolved]
  - Tremor [Recovered/Resolved]
